FAERS Safety Report 24964610 (Version 1)
Quarter: 2025Q1

REPORT INFORMATION
  Report Type: Report from Study
  Country: AR (occurrence: AR)
  Receive Date: 20250213
  Receipt Date: 20250213
  Transmission Date: 20250409
  Serious: Yes (Death, Hospitalization)
  Sender: UCB
  Company Number: AR-UCBSA-2025007885

PATIENT
  Age: 79 Year
  Sex: Female

DRUGS (1)
  1. BRIVARACETAM [Suspect]
     Active Substance: BRIVARACETAM
     Indication: Epilepsy
     Dosage: 50 MILLIGRAM, ONCE DAILY (QD)
     Route: 048
     Dates: start: 20240317, end: 20250122

REACTIONS (3)
  - Chronic kidney disease [Fatal]
  - Metabolic acidosis [Fatal]
  - Accident [Unknown]

NARRATIVE: CASE EVENT DATE: 20240520
